FAERS Safety Report 8881047 (Version 1)
Quarter: 2012Q4

REPORT INFORMATION
  Report Type: 
  Country: US (occurrence: US)
  Receive Date: 20121101
  Receipt Date: 20121101
  Transmission Date: 20130627
  Serious: Yes (Life-Threatening, Hospitalization)
  Sender: FDA-Public Use
  Company Number: US-ELI_LILLY_AND_COMPANY-US201210006508

PATIENT
  Age: 56 Year
  Sex: Male

DRUGS (3)
  1. CYMBALTA [Suspect]
     Indication: SOMATOFORM DISORDER
     Dosage: 60 mg, UNK
  2. WELLBUTRIN [Concomitant]
  3. LYRICA [Concomitant]

REACTIONS (1)
  - Acute respiratory distress syndrome [Unknown]
